FAERS Safety Report 6633260-7 (Version None)
Quarter: 2010Q1

REPORT INFORMATION
  Report Type: 
  Country: None (occurrence: None)
  Receive Date: 20100312
  Receipt Date: 20100304
  Transmission Date: 20100710
  Serious: Yes (Other)
  Sender: FDA-Public Use
  Company Number: US-PFIZER INC-2010028786

PATIENT
  Sex: Male
  Weight: 77.11 kg

DRUGS (3)
  1. LIPITOR [Suspect]
     Indication: BLOOD CHOLESTEROL
     Route: 048
  2. LIPITOR [Suspect]
     Dosage: 80 MG, DAILY
     Dates: start: 20100201
  3. ACETYLSALICYLIC ACID [Concomitant]

REACTIONS (2)
  - DRUG INEFFECTIVE [None]
  - THROMBOCYTOPENIA [None]
